FAERS Safety Report 8647422 (Version 5)
Quarter: 2013Q2

REPORT INFORMATION
  Report Type: Report from Study
  Country: US (occurrence: US)
  Receive Date: 20120703
  Receipt Date: 20130426
  Transmission Date: 20140414
  Serious: Yes (Other)
  Sender: FDA-Public Use
  Company Number: US-ASTELLAS-2012US005705

PATIENT
  Age: 72 Year
  Sex: Male

DRUGS (1)
  1. ERLOTINIB TABLET [Suspect]
     Indication: LUNG NEOPLASM MALIGNANT
     Dosage: 150 MG, UID/QD
     Route: 048
     Dates: start: 20120606

REACTIONS (8)
  - Conjunctivitis [Recovered/Resolved]
  - Oedema peripheral [Unknown]
  - Lip pain [Unknown]
  - Feeling cold [Unknown]
  - Nausea [Unknown]
  - Rash [Unknown]
  - Iron deficiency anaemia [Unknown]
  - Pernicious anaemia [Not Recovered/Not Resolved]
